FAERS Safety Report 4817215-0 (Version None)
Quarter: 2005Q4

REPORT INFORMATION
  Report Type: 
  Country: None (occurrence: None)
  Receive Date: 20051101
  Receipt Date: 20051021
  Transmission Date: 20060501
  Serious: Yes (Hospitalization)
  Sender: FDA-Public Use
  Company Number: FR-JNJFOC-20051005691

PATIENT
  Age: 59 Year
  Sex: Female

DRUGS (9)
  1. TOPALGIC [Suspect]
     Route: 048
  2. GLYBURIDE [Interacting]
     Indication: DIABETES MELLITUS
     Route: 048
  3. ALDACTAZINE [Concomitant]
     Route: 048
  4. ALDACTAZINE [Concomitant]
     Route: 048
  5. TRIATEC [Concomitant]
     Route: 048
  6. KARDEGIC [Concomitant]
     Route: 048
  7. METFORMINE [Concomitant]
     Indication: DIABETES MELLITUS
     Route: 048
  8. CARDENSIEL [Concomitant]
     Route: 048
  9. LANTUS [Concomitant]
     Indication: DIABETES MELLITUS
     Route: 058

REACTIONS (5)
  - ANOREXIA [None]
  - DRUG INTERACTION [None]
  - HYPOGLYCAEMIA [None]
  - NAUSEA [None]
  - WEIGHT DECREASED [None]
